FAERS Safety Report 5675513-5 (Version None)
Quarter: 2008Q1

REPORT INFORMATION
  Report Type: 
  Country: None (occurrence: None)
  Receive Date: 20080317
  Receipt Date: 20080220
  Transmission Date: 20080703
  Serious: Yes (Hospitalization)
  Sender: FDA-Public Use
  Company Number: 2008S1002892

PATIENT
  Age: 42 Year
  Sex: Male

DRUGS (3)
  1. BACLOFEN [Suspect]
     Dosage: 375 MG;ORAL;ONCE
     Route: 048
  2. CLONAZEPAM [Suspect]
     Dosage: ORAL
     Route: 048
  3. ALCOHOL [Suspect]
     Dosage: ORAL
     Route: 048

REACTIONS (2)
  - HYPERTENSION [None]
  - OVERDOSE [None]
